FAERS Safety Report 19455694 (Version 1)
Quarter: 2021Q2

REPORT INFORMATION
  Report Type: Spontaneous
  Country: US (occurrence: US)
  Receive Date: 20210623
  Receipt Date: 20210623
  Transmission Date: 20210717
  Serious: No
  Sender: FDA-Public Use
  Company Number: None

PATIENT
  Sex: Male
  Weight: 72 kg

DRUGS (2)
  1. CENTRUM MULTIVITAMINS [Concomitant]
     Active Substance: VITAMINS
  2. KETAMINE LOZENGES [Suspect]
     Active Substance: KETAMINE
     Indication: DEPRESSION
     Dosage: ?          OTHER FREQUENCY:ONCE EVERY 3 DAYS;?
     Route: 060
     Dates: start: 20210305, end: 20210615

REACTIONS (15)
  - Product physical issue [None]
  - Saliva altered [None]
  - Product colour issue [None]
  - Feeling abnormal [None]
  - Wrong technique in product usage process [None]
  - Dysgeusia [None]
  - Somnolence [None]
  - Therapeutic product effect decreased [None]
  - Lacrimation increased [None]
  - Intrusive thoughts [None]
  - Coordination abnormal [None]
  - Paraesthesia [None]
  - Pharyngeal paraesthesia [None]
  - Illness [None]
  - Parosmia [None]
